FAERS Safety Report 9820187 (Version 1)
Quarter: 2014Q1

REPORT INFORMATION
  Report Type: Spontaneous
  Country: US (occurrence: None)
  Receive Date: 20140113
  Receipt Date: 20140113
  Transmission Date: 20141002
  Serious: Yes (Hospitalization, Disabling)
  Sender: FDA-Public Use
  Company Number: None

PATIENT
  Age: 61 Year
  Sex: Male
  Weight: 70.31 kg

DRUGS (1)
  1. MUCINEX [Suspect]
     Indication: INCREASED UPPER AIRWAY SECRETION
     Dosage: 1 TABLET
     Route: 048
     Dates: start: 20131105, end: 20131105

REACTIONS (9)
  - Grand mal convulsion [None]
  - Hallucination [None]
  - Abdominal pain upper [None]
  - Vomiting [None]
  - Disorientation [None]
  - Anxiety [None]
  - Muscle twitching [None]
  - Memory impairment [None]
  - Clumsiness [None]
